FAERS Safety Report 9435321 (Version 2)
Quarter: 2013Q3

REPORT INFORMATION
  Report Type: Spontaneous
  Country: JP (occurrence: None)
  Receive Date: 20130730
  Receipt Date: 20130814
  Transmission Date: 20140515
  Serious: Yes (Hospitalization)
  Sender: FDA-Public Use
  Company Number: TCI2013A04392

PATIENT
  Age: 85 Year
  Sex: Female

DRUGS (11)
  1. ROZEREM TABLETS 8MG (RAMELTEON) [Suspect]
     Indication: INSOMNIA
     Dosage: 8 MG, 1 IN 1 D
     Route: 048
     Dates: start: 20130322, end: 20130625
  2. ROZEREM TABLETS 8MG (RAMELTEON) [Suspect]
     Indication: INSOMNIA
     Dosage: 8 MG, 1 IN 1 D
     Route: 048
     Dates: start: 20130322, end: 20130625
  3. AVAPRO (IRBESARTAN) [Concomitant]
  4. AMLODIPINE [Concomitant]
  5. CARVEDILOL [Concomitant]
  6. SELARA [Concomitant]
  7. TOYOFAROL [Concomitant]
  8. GASTER (FAMOTIDINE) [Concomitant]
  9. ALOSENN (ACHILLEA MILLEFOLIUM, SENNA ALEXANDRINA LEAF, SENNA ALEXANDRINA FRUIT, TARAXACUM OFFICINALE, RUBIA TINCTORUM ROOT TINCTURE) [Concomitant]
  10. ERISPAN (FLUIDIAZEPAM) [Concomitant]
  11. NEUROTROPIN (PYRIDOXINE HYDROCHLORIDE, THIAMINE HYDROCHLORIDE, CYANOCOBALAMIN, LIDOCAINE HYDROCHLORIDE) [Concomitant]

REACTIONS (1)
  - Jaundice cholestatic [None]
